FAERS Safety Report 5124545-4 (Version None)
Quarter: 2006Q3

REPORT INFORMATION
  Report Type: 
  Country: None (occurrence: None)
  Receive Date: 20060821
  Receipt Date: 20060607
  Transmission Date: 20061208
  Serious: No
  Sender: FDA-Public Use
  Company Number: TPA2006A00959

PATIENT
  Age: 52 Year
  Sex: Female

DRUGS (3)
  1. ROZEREM [Suspect]
     Indication: INSOMNIA
     Dosage: 8 MG, HS, PER ORAL
     Route: 048
     Dates: start: 20060531, end: 20060606
  2. FEMHRT [Concomitant]
  3. PROPRANOLOL (PROPANOLOL) (40 MILLIGRAM) [Concomitant]

REACTIONS (3)
  - ARTHRALGIA [None]
  - CONDITION AGGRAVATED [None]
  - JOINT SWELLING [None]
